FAERS Safety Report 12974036 (Version 1)
Quarter: 2016Q4

REPORT INFORMATION
  Report Type: Report from Study
  Country: DE (occurrence: DE)
  Receive Date: 20161124
  Receipt Date: 20161124
  Transmission Date: 20170207
  Serious: Yes (Death, Other)
  Sender: FDA-Public Use
  Company Number: DE-ROCHE-563920

PATIENT

DRUGS (3)
  1. PREDNISOLONE. [Suspect]
     Active Substance: PREDNISOLONE
     Indication: PROPHYLAXIS AGAINST TRANSPLANT REJECTION
     Route: 065
  2. CYCLOSPORINE A [Suspect]
     Active Substance: CYCLOSPORINE
     Indication: PROPHYLAXIS AGAINST TRANSPLANT REJECTION
     Route: 065
  3. MYCOPHENOLATE MOFETIL. [Suspect]
     Active Substance: MYCOPHENOLATE MOFETIL
     Indication: PROPHYLAXIS AGAINST TRANSPLANT REJECTION
     Route: 065

REACTIONS (11)
  - Cytomegalovirus infection [Unknown]
  - Gastrointestinal infection [Unknown]
  - Bacterial infection [Unknown]
  - Pneumonia [Unknown]
  - Obliterative bronchiolitis [Unknown]
  - Leukopenia [Unknown]
  - Nephropathy toxic [Unknown]
  - Herpes virus infection [Unknown]
  - Sepsis [Fatal]
  - Transplant rejection [Unknown]
  - Fungal infection [Unknown]
